FAERS Safety Report 19118586 (Version 1)
Quarter: 2021Q2

REPORT INFORMATION
  Report Type: Spontaneous
  Country: US (occurrence: US)
  Receive Date: 20210410
  Receipt Date: 20210410
  Transmission Date: 20210717
  Serious: Yes (Hospitalization, Other)
  Sender: FDA-Public Use
  Company Number: US-AMGEN-USASP2021050859

PATIENT
  Age: 39 Year
  Sex: Male

DRUGS (2)
  1. TAVALISSE [Concomitant]
     Active Substance: FOSTAMATINIB
     Dosage: UNK
  2. NPLATE [Suspect]
     Active Substance: ROMIPLOSTIM
     Indication: IMMUNE THROMBOCYTOPENIA
     Dosage: 1000 MICROGRAM, QWK
     Route: 065

REACTIONS (3)
  - Haemorrhage [Unknown]
  - Suspected COVID-19 [Unknown]
  - Platelet count decreased [Recovering/Resolving]
